FAERS Safety Report 8788536 (Version 4)
Quarter: 2012Q4

REPORT INFORMATION
  Report Type: 
  Country: US (occurrence: US)
  Receive Date: 20120914
  Receipt Date: 20121120
  Transmission Date: 20130627
  Serious: No
  Sender: FDA-Public Use
  Company Number: US-VERTEX PHARMACEUTICAL INC.-AE-2012-010856

PATIENT
  Age: 51 None
  Sex: Male

DRUGS (5)
  1. VX-950 (TELAPREVIR) [Suspect]
     Indication: HEPATITIS C
     Dosage: 375 mg, tid
     Dates: start: 20120625
  2. VX-950 (TELAPREVIR) [Suspect]
     Dosage: 1125 mg, bid
     Dates: start: 20120706, end: 201210
  3. PEGASYS [Concomitant]
     Indication: HEPATITIS C
     Dosage: 180 ?g, UNK
     Route: 058
     Dates: start: 20120625
  4. RIBASPHERE [Concomitant]
     Indication: HEPATITIS C
     Dosage: 600 mg, bid
     Route: 048
     Dates: start: 20120625
  5. RIBASPHERE [Concomitant]
     Dosage: dose reduced

REACTIONS (17)
  - Dyspnoea [Unknown]
  - Headache [Unknown]
  - Micturition urgency [Unknown]
  - Pollakiuria [Unknown]
  - Tremor [Unknown]
  - Dysphonia [Unknown]
  - Oropharyngeal pain [Unknown]
  - Sleep disorder [Unknown]
  - Productive cough [Unknown]
  - Pain in extremity [Unknown]
  - Dry mouth [Unknown]
  - Asthenia [Unknown]
  - Fatigue [Unknown]
  - Hypothyroidism [Unknown]
  - Rash papular [Unknown]
  - Anaemia [Unknown]
  - Pruritus generalised [Unknown]
